FAERS Safety Report 6292686-4 (Version None)
Quarter: 2009Q3

REPORT INFORMATION
  Report Type: 
  Country: None (occurrence: None)
  Receive Date: 20090731
  Receipt Date: 20090701
  Transmission Date: 20100115
  Serious: No
  Sender: FDA-Public Use
  Company Number: US-BAYER-200912018BCC

PATIENT
  Age: 69 Year
  Sex: Male
  Weight: 84 kg

DRUGS (10)
  1. ALEVE (CAPLET) [Suspect]
     Indication: ARTHRALGIA
     Dosage: TOOK TWO CAPLETS FOLLOWED BY ONE CAPLET 12 HOURS LATER AND AS ALEVE AS NEEDED TAKING.
     Route: 048
     Dates: start: 20090620, end: 20090630
  2. LISINOPRIL [Concomitant]
     Route: 065
  3. ASPIRIN [Concomitant]
     Route: 065
  4. FLOMAX [Concomitant]
     Route: 065
  5. COQ-10 [Concomitant]
     Route: 065
  6. OMEPRAZOLE [Concomitant]
     Route: 065
  7. AMLODIPINE [Concomitant]
     Route: 065
  8. METOPROLOL TARTRATE [Concomitant]
     Route: 065
  9. SIMVASTATIN [Concomitant]
     Route: 065
  10. DOXAZOSIN MESYLATE [Concomitant]
     Route: 065

REACTIONS (1)
  - ARTHRALGIA [None]
